FAERS Safety Report 17289774 (Version 1)
Quarter: 2020Q1

REPORT INFORMATION
  Report Type: Spontaneous
  Country: CN (occurrence: CN)
  Receive Date: 20200120
  Receipt Date: 20200120
  Transmission Date: 20200409
  Serious: Yes (Other)
  Sender: FDA-Public Use
  Company Number: CN-PFIZER INC-2020025412

PATIENT
  Age: 83 Year
  Sex: Female
  Weight: 65 kg

DRUGS (6)
  1. SODIUM CHLORIDE. [Concomitant]
     Active Substance: SODIUM CHLORIDE
     Indication: VEHICLE SOLUTION USE
     Dosage: 100 ML, 1X/DAY
     Route: 041
     Dates: start: 20191220, end: 20191227
  2. SODIUM CHLORIDE. [Concomitant]
     Active Substance: SODIUM CHLORIDE
     Dosage: 20 ML, 1X/DAY
     Route: 040
     Dates: start: 20191222, end: 20191227
  3. METHYLPREDNISOLONE SODIUM SUCCINATE. [Suspect]
     Active Substance: METHYLPREDNISOLONE SODIUM SUCCINATE
     Indication: RESPIRATORY FAILURE
  4. METHYLPREDNISOLONE SODIUM SUCCINATE. [Suspect]
     Active Substance: METHYLPREDNISOLONE SODIUM SUCCINATE
     Indication: PNEUMONIA
     Dosage: 40 MG, 1X/DAY
     Route: 040
     Dates: start: 20191222, end: 20191227
  5. YI SUO [DOXOFYLLINE] [Suspect]
     Active Substance: DOXOFYLLINE
     Indication: PNEUMONIA
     Dosage: 0.2 G, 1X/DAY
     Route: 041
     Dates: start: 20191220, end: 20191227
  6. YI SUO [DOXOFYLLINE] [Suspect]
     Active Substance: DOXOFYLLINE
     Indication: RESPIRATORY FAILURE

REACTIONS (3)
  - Tremor [Unknown]
  - Somnolence [Unknown]
  - Epilepsy [Recovering/Resolving]

NARRATIVE: CASE EVENT DATE: 20191226
